FAERS Safety Report 17782752 (Version 1)
Quarter: 2020Q2

REPORT INFORMATION
  Report Type: Report from Study
  Country: US (occurrence: US)
  Receive Date: 20200514
  Receipt Date: 20200514
  Transmission Date: 20200714
  Serious: Yes (Death, Hospitalization)
  Sender: FDA-Public Use
  Company Number: US-MYLANLABS-2020M1046864

PATIENT
  Age: 27 Year
  Sex: Female

DRUGS (9)
  1. TREPROSTINIL. [Suspect]
     Active Substance: TREPROSTINIL
     Indication: PULMONARY ARTERIAL HYPERTENSION
     Dosage: 1.25NG/KG/MINUTE (AFTER DELIVERY)
     Route: 042
  2. NOREPINEPHRINE. [Suspect]
     Active Substance: NOREPINEPHRINE
     Indication: PULMONARY ARTERIAL HYPERTENSION
     Dosage: 0.1 MICROGRAM/KILOGRAM, QMINUTE, DURING PREGNANCY
     Route: 065
  3. EPINEPHRINE. [Suspect]
     Active Substance: EPINEPHRINE
     Indication: PULMONARY ARTERIAL HYPERTENSION
     Dosage: 0.05 MICROGRAM/KILOGRAM, QMINUTE, AFTER DELIVERY
     Route: 065
  4. TREPROSTINIL. [Suspect]
     Active Substance: TREPROSTINIL
     Dosage: TITRATED UP TO A MAXIMUM DOSAGE OF 15NG/KG/MINUTE (AFTER DELIVERY)
     Route: 042
  5. DOPAMINE [Suspect]
     Active Substance: DOPAMINE HYDROCHLORIDE
     Indication: PULMONARY ARTERIAL HYPERTENSION
     Dosage: 3 MICROGRAM/KILOGRAM, QMINUTE, DURING PREGNANCY
     Route: 065
  6. DOBUTAMINE [Suspect]
     Active Substance: DOBUTAMINE HYDROCHLORIDE
     Indication: PULMONARY ARTERIAL HYPERTENSION
     Dosage: 5 MICROGRAM/KILOGRAM, QMINUTE, AFTER DELIVERY
     Route: 065
  7. ILOPROST. [Suspect]
     Active Substance: ILOPROST
     Indication: PULMONARY ARTERIAL HYPERTENSION
     Dosage: 3 MICROGRAM
  8. SILDENAFIL. [Suspect]
     Active Substance: SILDENAFIL
     Indication: PULMONARY ARTERIAL HYPERTENSION
     Dosage: 12.5 MILLIGRAM, QD, AFTER DELIVERY
     Route: 048
  9. NOREPINEPHRINE. [Suspect]
     Active Substance: NOREPINEPHRINE
     Dosage: 0.18 MICROGRAM/KILOGRAM, QMINUTE, AFTER DELIVERY
     Route: 065

REACTIONS (2)
  - Drug ineffective [Fatal]
  - Maternal exposure during pregnancy [Recovered/Resolved]
